FAERS Safety Report 4618086-8 (Version None)
Quarter: 2005Q1

REPORT INFORMATION
  Report Type: 
  Country: None (occurrence: None)
  Receive Date: 20050322
  Receipt Date: 20050302
  Transmission Date: 20050727
  Serious: Yes (Hospitalization)
  Sender: FDA-Public Use
  Company Number: B0373642A

PATIENT
  Age: 41 Year
  Sex: Female

DRUGS (5)
  1. PAROXETINE HCL [Suspect]
     Indication: DEPRESSION
     Dosage: PER DAY, ORAL
     Route: 048
  2. MILNACIPRAN HYDROCHLORIDE [Concomitant]
  3. HALOPERIDOL [Concomitant]
  4. LITHIUM CARBONATE [Concomitant]
  5. RISPERIDONE [Concomitant]

REACTIONS (9)
  - ABULIA [None]
  - DYSKINESIA [None]
  - FEELING ABNORMAL [None]
  - INTERMITTENT CLAUDICATION [None]
  - MYOCLONUS [None]
  - SEROTONIN SYNDROME [None]
  - SUICIDAL IDEATION [None]
  - THERAPY NON-RESPONDER [None]
  - TREMOR [None]
